FAERS Safety Report 24388318 (Version 1)
Quarter: 2024Q4

REPORT INFORMATION
  Report Type: Spontaneous
  Country: US (occurrence: None)
  Receive Date: 20241002
  Receipt Date: 20241002
  Transmission Date: 20250115
  Serious: No
  Sender: Public
  Company Number: None

PATIENT
  Age: 76 Year
  Sex: Female

DRUGS (4)
  1. XDEMVY [Suspect]
     Active Substance: LOTILANER
  2. CETIRIZINE 10MG TABLETS [Concomitant]
  3. DIPHENHYDRAMINE 25MG TABLETS [Concomitant]
  4. DOXYCYCLINE HYCLATE [Concomitant]
     Active Substance: DOXYCYCLINE HYCLATE

REACTIONS (2)
  - Swelling of eyelid [None]
  - Swelling face [None]

NARRATIVE: CASE EVENT DATE: 20240920
